FAERS Safety Report 8561623-1 (Version None)
Quarter: 2012Q3

REPORT INFORMATION
  Report Type: 
  Country: None (occurrence: None)
  Receive Date: 20120802
  Receipt Date: 20120726
  Transmission Date: 20120928
  Serious: Yes (Hospitalization, Disabling, Other)
  Sender: FDA-Public Use
  Company Number: US-009507513-1108USA01141

PATIENT

DRUGS (3)
  1. FOSAMAX PLUS D [Suspect]
     Indication: OSTEOPOROSIS PROPHYLAXIS
     Dosage: 70/5600
     Route: 048
     Dates: start: 20080108, end: 20100324
  2. FOSAMAX [Suspect]
     Dosage: 70 MG, UNK
     Route: 048
     Dates: start: 20010130, end: 20080108
  3. FOSAMAX [Suspect]
     Indication: OSTEOPOROSIS PROPHYLAXIS
     Dosage: 10 MG, UNK
     Route: 048
     Dates: start: 19960727, end: 20010130

REACTIONS (23)
  - CONTUSION [None]
  - JOINT INJURY [None]
  - RIB FRACTURE [None]
  - LIGAMENT SPRAIN [None]
  - CELLULITIS [None]
  - PLANTAR FASCIITIS [None]
  - VITAMIN D DEFICIENCY [None]
  - EXOSTOSIS [None]
  - OSTEOARTHRITIS [None]
  - ATELECTASIS [None]
  - HYPERLIPIDAEMIA [None]
  - GASTROOESOPHAGEAL REFLUX DISEASE [None]
  - WHITE BLOOD CELL COUNT DECREASED [None]
  - INFECTED DERMAL CYST [None]
  - FATIGUE [None]
  - TENDON CALCIFICATION [None]
  - PLEURAL EFFUSION [None]
  - NECK PAIN [None]
  - FEMUR FRACTURE [None]
  - FALL [None]
  - MIGRAINE [None]
  - BLOOD CHOLESTEROL INCREASED [None]
  - HEADACHE [None]
